FAERS Safety Report 10436324 (Version 1)
Quarter: 2014Q3

REPORT INFORMATION
  Report Type: Spontaneous
  Country: US (occurrence: None)
  Receive Date: 20140905
  Receipt Date: 20140905
  Transmission Date: 20150326
  Serious: Yes (Other)
  Sender: FDA-Public Use
  Company Number: None

PATIENT
  Age: 37 Year
  Sex: Female
  Weight: 79.83 kg

DRUGS (2)
  1. QSYMIA [Suspect]
     Active Substance: PHENTERMINE HYDROCHLORIDE\TOPIRAMATE
     Indication: ANGLE CLOSURE GLAUCOMA
     Dosage: 3.75/23, DAILY, ORAL
     Route: 048
     Dates: start: 20140815, end: 20140822
  2. QSYMIA [Suspect]
     Active Substance: PHENTERMINE HYDROCHLORIDE\TOPIRAMATE
     Indication: MYOPIA
     Dosage: 3.75/23, DAILY, ORAL
     Route: 048
     Dates: start: 20140815, end: 20140822

REACTIONS (3)
  - Oedema [None]
  - Vision blurred [None]
  - Ciliary body disorder [None]

NARRATIVE: CASE EVENT DATE: 20140828
